FAERS Safety Report 17200013 (Version 1)
Quarter: 2019Q4

REPORT INFORMATION
  Report Type: Spontaneous
  Country: CN (occurrence: CN)
  Receive Date: 20191226
  Receipt Date: 20191226
  Transmission Date: 20200122
  Serious: Yes (Disabling)
  Sender: FDA-Public Use
  Company Number: CN-BAXTER-2019BAX026141

PATIENT
  Age: 50 Year
  Sex: Male
  Weight: 67.5 kg

DRUGS (2)
  1. ENDOXAN [Suspect]
     Active Substance: CYCLOPHOSPHAMIDE
     Indication: NEPHROTIC SYNDROME
     Dosage: CYCLOPHOSPHAMIDE 0.4 G+0.9% SODIUM CHLORIDE 100 ML
     Route: 041
     Dates: start: 20191206, end: 20191207
  2. 0.9% SODIUM CHLORIDE INJECTION [Suspect]
     Active Substance: SODIUM CHLORIDE
     Indication: MEDICATION DILUTION
     Dosage: CYCLOPHOSPHAMIDE 0.4 G+0.9% SODIUM CHLORIDE 100 ML
     Route: 041
     Dates: start: 20191206, end: 20191207

REACTIONS (1)
  - Hepatic function abnormal [Recovering/Resolving]

NARRATIVE: CASE EVENT DATE: 20191208
